FAERS Safety Report 24937046 (Version 1)
Quarter: 2025Q1

REPORT INFORMATION
  Report Type: Spontaneous
  Country: US (occurrence: None)
  Receive Date: 20250205
  Receipt Date: 20250205
  Transmission Date: 20250408
  Serious: Yes (Hospitalization, Disabling)
  Sender: FDA-CTU
  Company Number: None

PATIENT
  Age: 66 Year
  Sex: Female
  Weight: 72 kg

DRUGS (4)
  1. OZEMPIC [Suspect]
     Active Substance: SEMAGLUTIDE
     Indication: Diabetes mellitus
  2. Losaortan [Concomitant]
  3. spironlactin [Concomitant]
  4. metaformin [Concomitant]

REACTIONS (3)
  - Impaired gastric emptying [None]
  - Haematemesis [None]
  - Therapy interrupted [None]

NARRATIVE: CASE EVENT DATE: 20250113
